FAERS Safety Report 4317291-8 (Version None)
Quarter: 2004Q1

REPORT INFORMATION
  Report Type: 
  Country: None (occurrence: None)
  Receive Date: 20040312
  Receipt Date: 20040301
  Transmission Date: 20041129
  Serious: Yes (Death)
  Sender: FDA-Public Use
  Company Number: JP-JNJFOC-20040301126

PATIENT
  Age: 52 Year
  Sex: Female

DRUGS (8)
  1. FENTANYL [Suspect]
     Indication: CANCER PAIN
     Dosage: SEE IMAGE
     Route: 062
     Dates: start: 20040124, end: 20040125
  2. FENTANYL [Suspect]
     Indication: CANCER PAIN
     Dosage: SEE IMAGE
     Route: 062
     Dates: start: 20040126, end: 20040204
  3. LOXOPROFEN SODIUM (LOXOPROFEN SODIUM) [Concomitant]
  4. PROTEINS, AMINO ACID AND PREPARATIONS (ALL OTHER THERAPEUTIC PRODUCTS) [Concomitant]
  5. METOCLOPRAMIDE [Concomitant]
  6. PENTAZOCINE LACTATE [Concomitant]
  7. HYDROXYZINE HCL [Concomitant]
  8. FUROSEMIDE [Concomitant]

REACTIONS (4)
  - COLON CANCER [None]
  - MALIGNANT NEOPLASM PROGRESSION [None]
  - NAUSEA [None]
  - OEDEMA PERIPHERAL [None]
